FAERS Safety Report 21903759 (Version 3)
Quarter: 2023Q1

REPORT INFORMATION
  Report Type: Report from Study
  Country: HU (occurrence: None)
  Receive Date: 20230124
  Receipt Date: 20230203
  Transmission Date: 20230418
  Serious: Yes (Hospitalization)
  Sender: FDA-Public Use
  Company Number: HU-Eisai Medical Research-EC-2023-132398

PATIENT
  Age: 65 Year
  Sex: Male
  Weight: 72.35 kg

DRUGS (15)
  1. LENVATINIB [Suspect]
     Active Substance: LENVATINIB
     Indication: Oesophageal cancer metastatic
     Route: 048
     Dates: start: 20221207, end: 20230116
  2. LENVATINIB [Suspect]
     Active Substance: LENVATINIB
     Route: 048
     Dates: start: 20230126
  3. PEMBROLIZUMAB [Suspect]
     Active Substance: PEMBROLIZUMAB
     Indication: Oesophageal cancer metastatic
     Route: 041
     Dates: start: 20221207, end: 20221207
  4. LEUCOVORIN [Suspect]
     Active Substance: LEUCOVORIN
     Indication: Oesophageal cancer metastatic
     Route: 042
     Dates: start: 20221207, end: 20230103
  5. LEUCOVORIN [Suspect]
     Active Substance: LEUCOVORIN
     Route: 042
     Dates: start: 20230126
  6. OXALIPLATIN [Suspect]
     Active Substance: OXALIPLATIN
     Indication: Oesophageal cancer metastatic
     Route: 042
     Dates: start: 20221207, end: 20230103
  7. OXALIPLATIN [Suspect]
     Active Substance: OXALIPLATIN
     Route: 042
     Dates: start: 20230126
  8. FLUOROURACIL [Suspect]
     Active Substance: FLUOROURACIL
     Indication: Oesophageal cancer metastatic
     Route: 040
     Dates: start: 20221207, end: 20230103
  9. FLUOROURACIL [Suspect]
     Active Substance: FLUOROURACIL
     Route: 042
     Dates: start: 20221207, end: 20230105
  10. FLUOROURACIL [Suspect]
     Active Substance: FLUOROURACIL
     Route: 040
     Dates: start: 20230126
  11. FLUOROURACIL [Suspect]
     Active Substance: FLUOROURACIL
     Route: 042
     Dates: start: 20230126
  12. AMLODIPINE BESYLATE\PERINDOPRIL ARGININE [Concomitant]
     Active Substance: AMLODIPINE BESYLATE\PERINDOPRIL ARGININE
     Dates: start: 201304
  13. NEBIVOLOL [Concomitant]
     Active Substance: NEBIVOLOL
     Dates: start: 201304
  14. APO FAMOTIDINE [Concomitant]
     Dates: start: 201304
  15. FRESUBIN ORIGINAL [Concomitant]
     Dates: start: 20221219

REACTIONS (1)
  - Immune-mediated pancreatitis [Recovered/Resolved]

NARRATIVE: CASE EVENT DATE: 20230116
